FAERS Safety Report 7984726-9 (Version None)
Quarter: 2011Q4

REPORT INFORMATION
  Report Type: 
  Country: None (occurrence: None)
  Receive Date: 20111216
  Receipt Date: 20111130
  Transmission Date: 20120403
  Serious: No
  Sender: FDA-Public Use
  Company Number: US-BAYER-2011-115509

PATIENT
  Age: 63 Year
  Sex: Female

DRUGS (3)
  1. ASPIRIN [Suspect]
     Indication: ANALGESIC THERAPY
     Dosage: 500 MG, Q4HR
     Route: 048
  2. EXFORGE [Concomitant]
  3. LISINOPRIL [Concomitant]

REACTIONS (2)
  - VOMITING [None]
  - NAUSEA [None]
